FAERS Safety Report 5757829-7 (Version None)
Quarter: 2008Q2

REPORT INFORMATION
  Report Type: 
  Country: None (occurrence: None)
  Receive Date: 20080603
  Receipt Date: 20080527
  Transmission Date: 20081010
  Serious: Yes (Other)
  Sender: FDA-Public Use
  Company Number: PHHY2008AU09121

PATIENT
  Age: 25 Year
  Sex: Male

DRUGS (1)
  1. VOLTAREN [Suspect]

REACTIONS (1)
  - ACCIDENTAL EXPOSURE [None]
